FAERS Safety Report 11924146 (Version 1)
Quarter: 2016Q1

REPORT INFORMATION
  Report Type: Spontaneous
  Country: US (occurrence: US)
  Receive Date: 20160118
  Receipt Date: 20160118
  Transmission Date: 20160526
  Serious: No
  Sender: FDA-Public Use
  Company Number: US-PFIZER INC-2016007566

PATIENT
  Age: 67 Year
  Sex: Male
  Weight: 160 kg

DRUGS (1)
  1. NITROGLYCERIN. [Suspect]
     Active Substance: NITROGLYCERIN
     Indication: CHEST PAIN
     Dosage: 3 DF, UNK
     Dates: start: 20071008

REACTIONS (1)
  - Drug ineffective [Unknown]
